FAERS Safety Report 14718674 (Version 2)
Quarter: 2018Q2

REPORT INFORMATION
  Report Type: Report from Study
  Country: CA (occurrence: CA)
  Receive Date: 20180405
  Receipt Date: 20180424
  Transmission Date: 20180711
  Serious: Yes (Other)
  Sender: FDA-Public Use
  Company Number: CA-UCBSA-2017049321

PATIENT
  Age: 74 Year
  Sex: Male
  Weight: 101 kg

DRUGS (18)
  1. CERTOLIZUMAB PEGOL RA [Suspect]
     Active Substance: CERTOLIZUMAB PEGOL
     Indication: RHEUMATOID ARTHRITIS
     Dosage: 400 MG, EV 2 WEEKS(QOW) X 3 TIMES
     Route: 058
     Dates: start: 20160111, end: 2016
  2. CERTOLIZUMAB PEGOL RA [Suspect]
     Active Substance: CERTOLIZUMAB PEGOL
     Dosage: 200 MG, EV 2 WEEKS(QOW)
     Route: 058
     Dates: start: 20160803, end: 20180328
  3. CALCIUM CITRATE W/MAGNESIUM/VITAMIN D NOS [Concomitant]
     Indication: SUPPLEMENTATION THERAPY
  4. METHOTREXATE. [Concomitant]
     Active Substance: METHOTREXATE
     Indication: RHEUMATOID ARTHRITIS
  5. VITAMIN D3 [Concomitant]
     Active Substance: CHOLECALCIFEROL
     Indication: SUPPLEMENTATION THERAPY
  6. SANDOMIGRAN DS [Concomitant]
     Indication: PROPHYLAXIS
  7. GLUCOSAMINE SULFATE [Concomitant]
     Active Substance: GLUCOSAMINE SULFATE
     Indication: SUPPLEMENTATION THERAPY
  8. BETADERM [Concomitant]
     Active Substance: BETAMETHASONE VALERATE
     Indication: ERYTHEMA
  9. OLIVE OIL [Concomitant]
     Active Substance: OLIVE OIL
     Indication: DRY SKIN
  10. BENADRYL [Concomitant]
     Active Substance: DIPHENHYDRAMINE HYDROCHLORIDE
     Indication: PRURITUS
     Dosage: UNKNOWN DOSE
  11. GLAXAL BASE [Concomitant]
     Indication: THERAPEUTIC SKIN CARE TOPICAL
  12. FOLIC ACID. [Concomitant]
     Active Substance: FOLIC ACID
     Indication: RHEUMATOID ARTHRITIS
  13. ASPIRIN. [Concomitant]
     Active Substance: ASPIRIN
     Indication: SUPPLEMENTATION THERAPY
  14. BETADERM [Concomitant]
     Active Substance: BETAMETHASONE VALERATE
     Indication: DRY SKIN
  15. DELONAL [Concomitant]
     Indication: DRY SKIN
  16. LUTEIN [Concomitant]
     Active Substance: LUTEIN
     Indication: SUPPLEMENTATION THERAPY
  17. LIPITOR [Concomitant]
     Active Substance: ATORVASTATIN CALCIUM
     Indication: BLOOD CHOLESTEROL
  18. VITAMIN B12 [Concomitant]
     Active Substance: CYANOCOBALAMIN
     Indication: SUPPLEMENTATION THERAPY

REACTIONS (10)
  - Blister [Unknown]
  - Decreased appetite [Recovering/Resolving]
  - Pruritus [Recovered/Resolved]
  - Contusion [Unknown]
  - Serum ferritin decreased [Not Recovered/Not Resolved]
  - Nasopharyngitis [Recovering/Resolving]
  - Blood creatinine decreased [Recovered/Resolved]
  - Influenza [Recovering/Resolving]
  - Dry skin [Recovered/Resolved]
  - Erythema [Recovered/Resolved]

NARRATIVE: CASE EVENT DATE: 2017
